FAERS Safety Report 22364663 (Version 2)
Quarter: 2025Q2

REPORT INFORMATION
  Report Type: Spontaneous
  Country: US (occurrence: US)
  Receive Date: 20230525
  Receipt Date: 20250522
  Transmission Date: 20250717
  Serious: Yes (Other)
  Sender: AUROBINDO
  Company Number: US-AUROBINDO-AUR-APL-2023-037801

PATIENT
  Age: 77 Year
  Sex: Female

DRUGS (1)
  1. NAPROXEN [Suspect]
     Active Substance: NAPROXEN
     Indication: Back pain
     Dosage: 500 MILLIGRAM, ONCE A DAY (1-2, ONCE A DAY)

REACTIONS (11)
  - Tubulointerstitial nephritis [Recovered/Resolved]
  - Glomerulosclerosis [Recovered/Resolved]
  - Renal atrophy [Recovered/Resolved]
  - Glomerulonephritis minimal lesion [Recovered/Resolved]
  - Kidney fibrosis [Recovered/Resolved]
  - Cough [Unknown]
  - Tachypnoea [Unknown]
  - Oedema [Recovered/Resolved]
  - Oliguria [Recovered/Resolved]
  - Wheezing [Unknown]
  - Arteriosclerosis [Recovered/Resolved]
